FAERS Safety Report 20655718 (Version 2)
Quarter: 2022Q1

REPORT INFORMATION
  Report Type: Spontaneous
  Country: US (occurrence: None)
  Receive Date: 20220330
  Receipt Date: 20220331
  Transmission Date: 20220423
  Serious: Yes (Hospitalization, Other)
  Sender: FDA-Public Use
  Company Number: 2022A125226

PATIENT

DRUGS (1)
  1. LOKELMA [Suspect]
     Active Substance: SODIUM ZIRCONIUM CYCLOSILICATE
     Route: 048

REACTIONS (5)
  - Blood potassium increased [Unknown]
  - Single functional kidney [Unknown]
  - Pain [Unknown]
  - Nephrolithiasis [Unknown]
  - Inability to afford medication [Unknown]
